FAERS Safety Report 4982491-0 (Version None)
Quarter: 2006Q2

REPORT INFORMATION
  Report Type: 
  Country: None (occurrence: None)
  Receive Date: 20060419
  Receipt Date: 20060407
  Transmission Date: 20061013
  Serious: Yes (Death, Hospitalization, Other)
  Sender: FDA-Public Use
  Company Number: 2006049338

PATIENT
  Age: 51 Year
  Sex: Male
  Weight: 127.0072 kg

DRUGS (4)
  1. GENOTROPIN [Suspect]
     Indication: HYPOPITUITARISM
     Dates: start: 19990101
  2. CORTEF [Suspect]
     Indication: HYPOPITUITARISM
     Dosage: ORAL
     Route: 048
     Dates: start: 19950101
  3. TESTOSTERONE [Concomitant]
  4. SYNTHROID [Concomitant]

REACTIONS (2)
  - ACUTE LYMPHOCYTIC LEUKAEMIA [None]
  - WEIGHT INCREASED [None]
